FAERS Safety Report 12233773 (Version 3)
Quarter: 2016Q2

REPORT INFORMATION
  Report Type: Report from Study
  Country: US (occurrence: US)
  Receive Date: 20160404
  Receipt Date: 20160428
  Transmission Date: 20160815
  Serious: Yes (Other)
  Sender: FDA-Public Use
  Company Number: PHEH2016US007863

PATIENT
  Age: 55 Year
  Sex: Male

DRUGS (5)
  1. ENTRESTO [Suspect]
     Active Substance: SACUBITRIL\VALSARTAN
     Indication: CARDIAC FAILURE
     Dosage: 100 MG, BID
     Route: 048
     Dates: start: 20160319, end: 20160323
  2. DIGOXIN. [Concomitant]
     Active Substance: DIGOXIN
     Indication: PRODUCT USED FOR UNKNOWN INDICATION
     Route: 065
  3. OMEPRAZOLE. [Concomitant]
     Active Substance: OMEPRAZOLE
     Indication: PRODUCT USED FOR UNKNOWN INDICATION
     Route: 065
  4. COREG [Concomitant]
     Active Substance: CARVEDILOL
     Indication: PRODUCT USED FOR UNKNOWN INDICATION
     Route: 065
  5. LASIX [Concomitant]
     Active Substance: FUROSEMIDE
     Indication: PRODUCT USED FOR UNKNOWN INDICATION
     Route: 065

REACTIONS (8)
  - Dermatitis allergic [Recovered/Resolved]
  - Nasal pruritus [Unknown]
  - Oral pruritus [Unknown]
  - Hypoaesthesia [Recovered/Resolved]
  - Hypersensitivity [Unknown]
  - Hypoaesthesia oral [Recovered/Resolved]
  - Pruritus [Recovered/Resolved]
  - Urticaria [Unknown]

NARRATIVE: CASE EVENT DATE: 20160319
